FAERS Safety Report 9579013 (Version 1)
Quarter: 2013Q4

REPORT INFORMATION
  Report Type: Spontaneous
  Country: US (occurrence: US)
  Receive Date: 20131001
  Receipt Date: 20131001
  Transmission Date: 20140711
  Serious: No
  Sender: FDA-Public Use
  Company Number: US-AMGEN-USASP2013016247

PATIENT
  Age: 51 Year
  Sex: Female
  Weight: 61.22 kg

DRUGS (6)
  1. ENBREL [Suspect]
     Indication: PRODUCT USED FOR UNKNOWN INDICATION
     Dosage: 50 MG, QWK
     Route: 058
  2. FISH OIL [Concomitant]
     Dosage: UNK
  3. VITAMIN D                          /00107901/ [Concomitant]
     Dosage: 1000 UNIT, UNK
  4. VITAMIN B COMPLEX [Concomitant]
     Dosage: UNK
  5. GLA                                /01031101/ [Concomitant]
     Dosage: 250 UNK, UNK
  6. PROBIOTIC                          /06395501/ [Concomitant]
     Dosage: UNK

REACTIONS (1)
  - White blood cell count decreased [Unknown]
